FAERS Safety Report 7627968-4 (Version None)
Quarter: 2011Q3

REPORT INFORMATION
  Report Type: 
  Country: None (occurrence: None)
  Receive Date: 20110722
  Receipt Date: 20110713
  Transmission Date: 20111222
  Serious: Yes (Hospitalization)
  Sender: FDA-Public Use
  Company Number: US-BIOGENIDEC-2011BI023735

PATIENT
  Age: 41 Year
  Sex: Male

DRUGS (4)
  1. RISPERDAL [Concomitant]
     Indication: SCHIZOAFFECTIVE DISORDER
  2. TYSABRI [Suspect]
     Indication: MULTIPLE SCLEROSIS
     Route: 042
     Dates: start: 20090820
  3. BENZTROPINE MESYLATE [Concomitant]
     Indication: SCHIZOAFFECTIVE DISORDER
  4. CELEXA [Concomitant]
     Indication: SCHIZOAFFECTIVE DISORDER

REACTIONS (2)
  - DEEP VEIN THROMBOSIS [None]
  - PULMONARY EMBOLISM [None]
